FAERS Safety Report 9912471 (Version 1)
Quarter: 2014Q1

REPORT INFORMATION
  Report Type: Report from Study
  Country: AR (occurrence: AR)
  Receive Date: 20140220
  Receipt Date: 20140220
  Transmission Date: 20141002
  Serious: Yes (Hospitalization)
  Sender: FDA-Public Use
  Company Number: AR-BRISTOL-MYERS SQUIBB COMPANY-20183976

PATIENT
  Age: 41 Year
  Sex: Male

DRUGS (1)
  1. ABATACEPT SUBQ INJECTION 125MG/ML [Suspect]
     Dosage: INTERRUPTED ON 18DEC13
     Route: 058
     Dates: start: 20131206

REACTIONS (2)
  - Snake bite [Recovering/Resolving]
  - Oral infection [Recovering/Resolving]
